FAERS Safety Report 11061584 (Version 4)
Quarter: 2015Q2

REPORT INFORMATION
  Report Type: Report from Study
  Country: CN (occurrence: CN)
  Receive Date: 20150424
  Receipt Date: 20150521
  Transmission Date: 20150821
  Serious: Yes (Death, Hospitalization)
  Sender: FDA-Public Use
  Company Number: CN-BAYER-2015-157359

PATIENT
  Age: 26 Year
  Sex: Male
  Weight: 61 kg

DRUGS (80)
  1. RIOCIGUAT (GUANYLATE CYCLASE STIMULATOR) [Suspect]
     Active Substance: RIOCIGUAT
     Indication: PULMONARY ARTERIAL HYPERTENSION
     Dosage: UNK
     Dates: start: 20100513, end: 20100526
  2. RIOCIGUAT (GUANYLATE CYCLASE STIMULATOR) [Suspect]
     Active Substance: RIOCIGUAT
     Indication: PULMONARY ARTERIAL HYPERTENSION
     Dosage: 2.5
     Dates: start: 20100624, end: 20100926
  3. RIOCIGUAT (GUANYLATE CYCLASE STIMULATOR) [Suspect]
     Active Substance: RIOCIGUAT
     Indication: PULMONARY ARTERIAL HYPERTENSION
     Dosage: 2.5
     Dates: start: 20130918, end: 20131203
  4. RIOCIGUAT (GUANYLATE CYCLASE STIMULATOR) [Suspect]
     Active Substance: RIOCIGUAT
     Indication: PULMONARY ARTERIAL HYPERTENSION
     Dosage: 2.5
     Dates: start: 20141204, end: 20150215
  5. FUROSEMIDUM [Concomitant]
     Active Substance: FUROSEMIDE
     Indication: POLYURIA
     Dosage: 20 MG DAILY
     Dates: start: 20150310, end: 20150310
  6. FUROSEMIDUM [Concomitant]
     Active Substance: FUROSEMIDE
     Indication: POLYURIA
     Dosage: 20 MG DAILY
     Dates: start: 20150328, end: 20150328
  7. OMEPRAZOLE. [Concomitant]
     Active Substance: OMEPRAZOLE
     Indication: PROPHYLAXIS
     Dosage: 80 MG DAILY
     Dates: start: 20150315, end: 20150401
  8. CODEINE [Concomitant]
     Active Substance: CODEINE
     Indication: PRODUCTIVE COUGH
     Dosage: 1 DF, QD
     Dates: start: 20150316, end: 20150316
  9. ETAMSYLATE [Concomitant]
     Active Substance: ETHAMSYLATE
     Indication: HAEMOSTASIS
     Dosage: 0.5 G DAILY
     Dates: start: 20150312, end: 20150312
  10. HAEMOCOAGULASE [Concomitant]
     Indication: HAEMOPTYSIS
     Dosage: 1 U DAILY
     Dates: start: 20150417, end: 20150417
  11. RIOCIGUAT (GUANYLATE CYCLASE STIMULATOR) [Suspect]
     Active Substance: RIOCIGUAT
     Indication: PULMONARY ARTERIAL HYPERTENSION
     Dosage: 2.5
     Dates: start: 20100927, end: 20101227
  12. RIOCIGUAT (GUANYLATE CYCLASE STIMULATOR) [Suspect]
     Active Substance: RIOCIGUAT
     Indication: PULMONARY ARTERIAL HYPERTENSION
     Dosage: 2.5
     Dates: start: 20110914, end: 20111215
  13. RIOCIGUAT (GUANYLATE CYCLASE STIMULATOR) [Suspect]
     Active Substance: RIOCIGUAT
     Indication: PULMONARY ARTERIAL HYPERTENSION
     Dosage: 2.5
     Dates: start: 20120612, end: 20120911
  14. FUROSEMIDUM [Concomitant]
     Active Substance: FUROSEMIDE
     Indication: POLYURIA
     Dosage: 80 MG DAILY
     Dates: start: 20150317, end: 20150420
  15. METOCLOPRAMIDE. [Concomitant]
     Active Substance: METOCLOPRAMIDE
     Indication: PROPHYLAXIS
     Dosage: 10 MG TOTAL DAILY
     Dates: start: 20150314, end: 20150314
  16. POTASSIUM CHLORIDE. [Concomitant]
     Active Substance: POTASSIUM CHLORIDE
     Indication: MINERAL SUPPLEMENTATION
     Dosage: 1.5 G
     Dates: start: 20150317, end: 20150317
  17. FUROSEMIDE. [Concomitant]
     Active Substance: FUROSEMIDE
     Indication: PULMONARY ARTERIAL HYPERTENSION
     Dosage: 15 MG DAILY DOSE
     Dates: start: 20150315, end: 20150317
  18. AMINOMETHYLBENZOIC ACID [Concomitant]
     Indication: HAEMOSTASIS
     Dosage: DAILY0.3 G
     Dates: start: 20150312, end: 20150318
  19. RIOCIGUAT (GUANYLATE CYCLASE STIMULATOR) [Suspect]
     Active Substance: RIOCIGUAT
     Indication: PULMONARY ARTERIAL HYPERTENSION
     Dosage: 2.5
     Dates: start: 20111216, end: 20120314
  20. CEFTRIAXONE SODIUM. [Concomitant]
     Active Substance: CEFTRIAXONE SODIUM
     Indication: LUNG INFECTION
     Dosage: TOTAL DAILY 1 G
     Dates: start: 20150313, end: 20150313
  21. CEFTRIAXONE SODIUM. [Concomitant]
     Active Substance: CEFTRIAXONE SODIUM
     Indication: LUNG INFECTION
     Dosage: TOTAL DAILY 1 G
     Dates: start: 20150314, end: 20150314
  22. CEFTRIAXONE SODIUM. [Concomitant]
     Active Substance: CEFTRIAXONE SODIUM
     Indication: LUNG INFECTION
     Dosage: 2 G TOTAL DAILY
     Dates: start: 20150314, end: 20150314
  23. AMBROXOL HYDROCHLORIDE [Concomitant]
     Active Substance: AMBROXOL HYDROCHLORIDE
     Indication: PULMONARY ARTERIAL HYPERTENSION
     Dosage: 30 MG DAILY
     Dates: start: 20150316, end: 20150316
  24. ETAMSYLATE [Concomitant]
     Active Substance: ETHAMSYLATE
     Indication: HAEMOPTYSIS
     Dosage: 0.5 G DAILY
     Dates: start: 20150312, end: 20150318
  25. AMINOMETHYLBENZOIC ACID [Concomitant]
     Indication: HAEMOSTASIS
     Dosage: 0.3 G DAILY
     Dates: start: 20150312, end: 20150312
  26. DEXAMETHASONE [DEXAMETHASONE] [Concomitant]
     Indication: PULMONARY ARTERIAL HYPERTENSION
     Dosage: 5 MG DAILY
     Dates: start: 20150311, end: 20150311
  27. HAEMOCOAGULASE [Concomitant]
     Indication: PULMONARY ARTERIAL HYPERTENSION
     Dosage: 1 U DAILY
     Dates: start: 20150311, end: 20150311
  28. MYRTOL [Concomitant]
     Active Substance: HERBALS
     Indication: PULMONARY ARTERIAL HYPERTENSION
     Dosage: 0.9 G DAILY
     Dates: start: 20150309, end: 20150326
  29. RIOCIGUAT (GUANYLATE CYCLASE STIMULATOR) [Suspect]
     Active Substance: RIOCIGUAT
     Indication: PULMONARY ARTERIAL HYPERTENSION
     Dosage: 2.5
     Dates: start: 20120912, end: 20121212
  30. BOSENTAN [Concomitant]
     Active Substance: BOSENTAN\BOSENTAN MONOHYDRATE
     Indication: PULMONARY ARTERIAL HYPERTENSION
     Dosage: TOTAL DAILY 125 MG
     Dates: start: 20120612
  31. FUROSEMIDUM [Concomitant]
     Active Substance: FUROSEMIDE
     Indication: POLYURIA
     Dosage: 20 MG DAILY
     Dates: start: 20150315, end: 20150315
  32. FUROSEMIDUM [Concomitant]
     Active Substance: FUROSEMIDE
     Indication: POLYURIA
     Dosage: 40 MG DAILY
     Dates: start: 20150315, end: 20150317
  33. FUROSEMIDUM [Concomitant]
     Active Substance: FUROSEMIDE
     Indication: POLYURIA
     Dosage: 40 MG DAILY
     Dates: start: 20150316, end: 20150316
  34. FUROSEMIDUM [Concomitant]
     Active Substance: FUROSEMIDE
     Indication: POLYURIA
     Dosage: 20 MG DAILY
     Dates: start: 20150316, end: 20150316
  35. FUROSEMIDUM [Concomitant]
     Active Substance: FUROSEMIDE
     Indication: POLYURIA
     Dosage: 20 MG DAILY
     Dates: start: 20150318, end: 20150318
  36. FUROSEMIDUM [Concomitant]
     Active Substance: FUROSEMIDE
     Indication: POLYURIA
     Dosage: 20 MG DAILY
     Dates: start: 20150327, end: 20150327
  37. OMEPRAZOLE. [Concomitant]
     Active Substance: OMEPRAZOLE
     Indication: PROPHYLAXIS
     Dosage: 40 MG DAILY
     Dates: start: 20150311, end: 20150311
  38. OMEPRAZOLE. [Concomitant]
     Active Substance: OMEPRAZOLE
     Indication: PULMONARY ARTERIAL HYPERTENSION
     Dosage: 40 MG TOTAL DAILY
     Dates: start: 20150313, end: 20150313
  39. FUROSEMIDE. [Concomitant]
     Active Substance: FUROSEMIDE
     Indication: PULMONARY ARTERIAL HYPERTENSION
     Dosage: 40 MG DAILY
     Dates: start: 20150317, end: 20150420
  40. CODEINE PHOSPHATE [Concomitant]
     Active Substance: CODEINE PHOSPHATE
     Indication: COUGH
     Dosage: 10 ML  DAILY
     Dates: start: 20150315, end: 20150315
  41. HAEMOCOAGULASE [Concomitant]
     Indication: HAEMOPTYSIS
     Dosage: 1 U DAILY
     Dates: start: 20150312, end: 20150312
  42. RIOCIGUAT (GUANYLATE CYCLASE STIMULATOR) [Suspect]
     Active Substance: RIOCIGUAT
     Indication: PULMONARY ARTERIAL HYPERTENSION
     Dosage: UNK
     Dates: start: 20100401, end: 20100414
  43. RIOCIGUAT (GUANYLATE CYCLASE STIMULATOR) [Suspect]
     Active Substance: RIOCIGUAT
     Indication: PULMONARY ARTERIAL HYPERTENSION
     Dosage: UNK
     Dates: start: 20100428, end: 20100512
  44. RIOCIGUAT (GUANYLATE CYCLASE STIMULATOR) [Suspect]
     Active Substance: RIOCIGUAT
     Indication: PULMONARY ARTERIAL HYPERTENSION
     Dosage: 2.5
     Dates: start: 20100527, end: 20100623
  45. RIOCIGUAT (GUANYLATE CYCLASE STIMULATOR) [Suspect]
     Active Substance: RIOCIGUAT
     Indication: PULMONARY ARTERIAL HYPERTENSION
     Dosage: 2.5
     Dates: start: 20130313, end: 20130604
  46. RIOCIGUAT (GUANYLATE CYCLASE STIMULATOR) [Suspect]
     Active Substance: RIOCIGUAT
     Indication: PULMONARY ARTERIAL HYPERTENSION
     Dosage: 2.5
     Dates: start: 20140604, end: 20140902
  47. FUROSEMIDUM [Concomitant]
     Active Substance: FUROSEMIDE
     Indication: POLYURIA
     Dosage: TOTAL DAILY 20 MG
     Dates: start: 20150313, end: 20150313
  48. FUROSEMIDUM [Concomitant]
     Active Substance: FUROSEMIDE
     Indication: POLYURIA
     Dosage: 20 MG TOTAL DAILY
     Dates: start: 20150314, end: 20150314
  49. FUROSEMIDUM [Concomitant]
     Active Substance: FUROSEMIDE
     Indication: POLYURIA
     Dosage: 20 MG DAILY
     Dates: start: 20150325, end: 20150326
  50. FUROSEMIDUM [Concomitant]
     Active Substance: FUROSEMIDE
     Indication: POLYURIA
     Dosage: 100 MG DAILY
     Dates: start: 20150330, end: 20150403
  51. TOLVAPTAN [Concomitant]
     Active Substance: TOLVAPTAN
     Indication: CARDIAC DISORDER
     Dosage: 15 MG TOTAL DAILY
     Dates: start: 20150317, end: 20150321
  52. MECOBALAMIN [Concomitant]
     Active Substance: METHYLCOBALAMIN
     Indication: PULMONARY ARTERIAL HYPERTENSION
     Dosage: 1.5 G DAILY
     Dates: start: 20150310, end: 20150310
  53. AMINOMETHYLBENZOIC ACID [Concomitant]
     Indication: HAEMOSTASIS
     Dosage: 0.3 G DAILY
     Dates: start: 20150330, end: 20150330
  54. LEVOCARNITINE. [Concomitant]
     Active Substance: LEVOCARNITINE
     Indication: PULMONARY ARTERIAL HYPERTENSION
     Dosage: 3 G DAILY
     Dates: start: 20150311, end: 20150323
  55. RIOCIGUAT (GUANYLATE CYCLASE STIMULATOR) [Suspect]
     Active Substance: RIOCIGUAT
     Indication: PULMONARY ARTERIAL HYPERTENSION
     Dosage: 2.5
     Dates: start: 20130605, end: 20130917
  56. FUROSEMIDUM [Concomitant]
     Active Substance: FUROSEMIDE
     Indication: PULMONARY ARTERIAL HYPERTENSION
     Dosage: 20 MG DAILY
     Dates: start: 20150311, end: 20150311
  57. POTASSIUM CHLORIDE. [Concomitant]
     Active Substance: POTASSIUM CHLORIDE
     Indication: MINERAL SUPPLEMENTATION
     Dosage: 1.5 G
     Dates: start: 20150314, end: 20150314
  58. AMBROXOL HYDROCHLORIDE [Concomitant]
     Active Substance: AMBROXOL HYDROCHLORIDE
     Indication: PULMONARY ARTERIAL HYPERTENSION
     Dosage: 120 MG DAILY
     Dates: start: 20150316, end: 20150420
  59. ETAMSYLATE [Concomitant]
     Active Substance: ETHAMSYLATE
     Indication: HAEMOSTASIS
     Dosage: 0.5 G DAILY
     Dates: start: 20150330, end: 20150330
  60. DEXAMETHASONE [DEXAMETHASONE] [Concomitant]
     Indication: ALLERGY PROPHYLAXIS
     Dosage: 5 MG
     Dates: start: 20150313, end: 20150313
  61. RIOCIGUAT (GUANYLATE CYCLASE STIMULATOR) [Suspect]
     Active Substance: RIOCIGUAT
     Indication: PULMONARY ARTERIAL HYPERTENSION
     Dosage: 2.5
     Dates: start: 20110321, end: 20110614
  62. RIOCIGUAT (GUANYLATE CYCLASE STIMULATOR) [Suspect]
     Active Substance: RIOCIGUAT
     Indication: PULMONARY ARTERIAL HYPERTENSION
     Dosage: 2.5
     Dates: start: 20120315, end: 20120611
  63. RIOCIGUAT (GUANYLATE CYCLASE STIMULATOR) [Suspect]
     Active Substance: RIOCIGUAT
     Indication: PULMONARY ARTERIAL HYPERTENSION
     Dosage: 2.5
     Dates: start: 20121213, end: 20130312
  64. RIOCIGUAT (GUANYLATE CYCLASE STIMULATOR) [Suspect]
     Active Substance: RIOCIGUAT
     Indication: PULMONARY ARTERIAL HYPERTENSION
     Dosage: 2.5
     Dates: start: 20131204, end: 20140304
  65. RIOCIGUAT (GUANYLATE CYCLASE STIMULATOR) [Suspect]
     Active Substance: RIOCIGUAT
     Indication: PULMONARY ARTERIAL HYPERTENSION
     Dosage: 2.5
     Dates: start: 20140903, end: 20141203
  66. FUROSEMIDUM [Concomitant]
     Active Substance: FUROSEMIDE
     Indication: POLYURIA
     Dosage: 40 MG DAILY
     Dates: start: 20150317, end: 20150317
  67. OMEPRAZOLE. [Concomitant]
     Active Substance: OMEPRAZOLE
     Indication: PROPHYLAXIS
     Dosage: 40 MG DAILY
     Dates: start: 20150315, end: 20150315
  68. DOMPERIDONE [Concomitant]
     Active Substance: DOMPERIDONE
     Indication: PULMONARY ARTERIAL HYPERTENSION
     Dosage: 30 MG DAILY
     Dates: start: 20150314, end: 20150320
  69. FUROSEMIDE. [Concomitant]
     Active Substance: FUROSEMIDE
     Indication: PULMONARY ARTERIAL HYPERTENSION
     Dosage: 20 MG DAILY
     Dates: start: 20150309, end: 20150309
  70. LEVOFLOXACIN. [Concomitant]
     Active Substance: LEVOFLOXACIN
     Indication: PULMONARY ARTERIAL HYPERTENSION
     Dosage: 0.5 G
     Dates: start: 20150312, end: 20150323
  71. POTASSIUM MAGNESIUM ASPARTATE [Concomitant]
     Indication: ELECTROLYTE SUBSTITUTION THERAPY
     Dosage: 30 ML
     Dates: start: 20150414, end: 20150419
  72. HAEMOCOAGULASE [Concomitant]
     Indication: HAEMOPTYSIS
     Dosage: 2 U DAILY
     Dates: start: 20150330, end: 20150330
  73. RIOCIGUAT (GUANYLATE CYCLASE STIMULATOR) [Suspect]
     Active Substance: RIOCIGUAT
     Indication: PULMONARY ARTERIAL HYPERTENSION
     Dosage: UNK
     Dates: start: 20100415, end: 20100427
  74. RIOCIGUAT (GUANYLATE CYCLASE STIMULATOR) [Suspect]
     Active Substance: RIOCIGUAT
     Indication: PULMONARY ARTERIAL HYPERTENSION
     Dosage: 2.5
     Dates: start: 20101228, end: 20110320
  75. RIOCIGUAT (GUANYLATE CYCLASE STIMULATOR) [Suspect]
     Active Substance: RIOCIGUAT
     Indication: PULMONARY ARTERIAL HYPERTENSION
     Dosage: 2.5
     Dates: start: 20110615, end: 20110913
  76. RIOCIGUAT (GUANYLATE CYCLASE STIMULATOR) [Suspect]
     Active Substance: RIOCIGUAT
     Indication: PULMONARY ARTERIAL HYPERTENSION
     Dosage: 2.5
     Dates: start: 20140305, end: 20140603
  77. RIOCIGUAT (GUANYLATE CYCLASE STIMULATOR) [Suspect]
     Active Substance: RIOCIGUAT
     Indication: PULMONARY ARTERIAL HYPERTENSION
     Dosage: 2.5
     Dates: start: 20150216, end: 20150419
  78. OMEPRAZOLE. [Concomitant]
     Active Substance: OMEPRAZOLE
     Indication: PROPHYLAXIS
     Dosage: 40 MG DAILY
     Dates: start: 20150318, end: 20150318
  79. LEVOCARNITINE. [Concomitant]
     Active Substance: LEVOCARNITINE
     Indication: PULMONARY ARTERIAL HYPERTENSION
     Dosage: 3 G DAILY
     Dates: start: 20150311, end: 20150311
  80. HAEMOCOAGULASE [Concomitant]
     Indication: HAEMOPTYSIS
     Dosage: 2 U TOTAL DAILY
     Dates: start: 20150309, end: 20150318

REACTIONS (5)
  - Syncope [Recovered/Resolved]
  - Pulmonary arterial hypertension [Fatal]
  - Syncope [Recovered/Resolved]
  - Syncope [Recovered/Resolved]
  - Syncope [Recovered/Resolved]

NARRATIVE: CASE EVENT DATE: 20150309
